FAERS Safety Report 17854747 (Version 1)
Quarter: 2020Q2

REPORT INFORMATION
  Report Type: Other
  Country: DE (occurrence: JP)
  Receive Date: 20200603
  Receipt Date: 20200603
  Transmission Date: 20200714
  Serious: Yes (Other)
  Sender: FDA-Public Use
  Company Number: JP-DEXPHARM-20200465

PATIENT
  Age: 14 Year
  Sex: Male

DRUGS (4)
  1. L- ASPARAGINASE [Interacting]
     Active Substance: ASPARAGINASE
  2. INSULIN [Concomitant]
     Active Substance: INSULIN NOS
  3. HYDROCORTISONE. [Suspect]
     Active Substance: HYDROCORTISONE
  4. DEXAMETHASONE. [Suspect]
     Active Substance: DEXAMETHASONE

REACTIONS (1)
  - Drug interaction [Unknown]
